FAERS Safety Report 6343769-1 (Version None)
Quarter: 2009Q3

REPORT INFORMATION
  Report Type: 
  Country: None (occurrence: None)
  Receive Date: 20090908
  Receipt Date: 20090901
  Transmission Date: 20100115
  Serious: Yes (Life-Threatening, Hospitalization)
  Sender: FDA-Public Use
  Company Number: B0587353A

PATIENT
  Age: 31 Year
  Sex: Male

DRUGS (2)
  1. LAMICTAL [Suspect]
     Indication: EPILEPSY
     Dosage: 12.5MG PER DAY
     Route: 048
     Dates: start: 20090701, end: 20090701
  2. VALPROATE SODIUM [Concomitant]

REACTIONS (5)
  - LIVER DISORDER [None]
  - PYREXIA [None]
  - RASH [None]
  - RENAL DISORDER [None]
  - STEVENS-JOHNSON SYNDROME [None]
